FAERS Safety Report 25899540 (Version 1)
Quarter: 2025Q4

REPORT INFORMATION
  Report Type: Spontaneous
  Country: JP (occurrence: JP)
  Receive Date: 20251009
  Receipt Date: 20251009
  Transmission Date: 20260117
  Serious: Yes (Other)
  Sender: EXELIXIS
  Company Number: JP-TAKEDA-2025TJP009887

PATIENT
  Age: 6 Decade
  Sex: Male

DRUGS (2)
  1. CABOMETYX [Suspect]
     Active Substance: CABOZANTINIB S-MALATE
     Indication: Renal cell carcinoma
     Dosage: 60 MILLIGRAM, QD
     Route: 048
     Dates: start: 20250401, end: 20250430
  2. CABOMETYX [Suspect]
     Active Substance: CABOZANTINIB S-MALATE
     Dosage: 20 MILLIGRAM
     Route: 048

REACTIONS (2)
  - Stevens-Johnson syndrome [Recovering/Resolving]
  - Stevens-Johnson syndrome [Recovered/Resolved]

NARRATIVE: CASE EVENT DATE: 20250430
